FAERS Safety Report 7465424-7 (Version None)
Quarter: 2011Q1

REPORT INFORMATION
  Report Type: 
  Country: None (occurrence: None)
  Receive Date: 20110302
  Receipt Date: 20100922
  Transmission Date: 20110831
  Serious: Yes (Other)
  Sender: FDA-Public Use
  Company Number: 163-21880-10072403

PATIENT
  Age: 58 Year
  Sex: Female

DRUGS (3)
  1. REVLIMID [Suspect]
  2. REVLIMID [Suspect]
     Indication: MULTIPLE MYELOMA
     Dosage: 10 MG, 1 IN 1 D, PO
     Route: 048
     Dates: start: 20090624
  3. REVLIMID [Suspect]

REACTIONS (5)
  - FLUSHING [None]
  - HEADACHE [None]
  - NEUROPATHY PERIPHERAL [None]
  - RASH [None]
  - DIABETES MELLITUS [None]
